FAERS Safety Report 8473792-2 (Version None)
Quarter: 2012Q2

REPORT INFORMATION
  Report Type: 
  Country: None (occurrence: None)
  Receive Date: 20120628
  Receipt Date: 20111116
  Transmission Date: 20120825
  Serious: Yes (Other)
  Sender: FDA-Public Use
  Company Number: US-MYLANLABS-2011S1023588

PATIENT
  Age: 49 Year
  Sex: Female

DRUGS (8)
  1. CLOZAPINE [Suspect]
     Indication: SCHIZOAFFECTIVE DISORDER
     Route: 048
     Dates: end: 20111109
  2. CLOZAPINE [Suspect]
     Route: 048
     Dates: end: 20111109
  3. DEPAKOTE [Concomitant]
     Dosage: USING DEPAKOTE, 500MG
  4. PROTONIX [Concomitant]
  5. PAXIL [Concomitant]
  6. NAPROXEN [Concomitant]
  7. CRESTOR [Concomitant]
  8. KLONOPIN [Concomitant]

REACTIONS (1)
  - GRANULOCYTOPENIA [None]
